FAERS Safety Report 17938634 (Version 4)
Quarter: 2020Q3

REPORT INFORMATION
  Report Type: Spontaneous
  Country: US (occurrence: US)
  Receive Date: 20200625
  Receipt Date: 20200805
  Transmission Date: 20201103
  Serious: No
  Sender: FDA-Public Use
  Company Number: US-AMGEN INC.-USASP2020100619

PATIENT
  Age: 65 Year
  Sex: Female

DRUGS (1)
  1. AIMOVIG [Suspect]
     Active Substance: ERENUMAB-AOOE
     Indication: MIGRAINE PROPHYLAXIS
     Dosage: 70 MILLIGRAM
     Route: 065
     Dates: start: 20200622

REACTIONS (3)
  - Injection site haemorrhage [Unknown]
  - Incorrect dose administered [Unknown]
  - Device use error [Unknown]

NARRATIVE: CASE EVENT DATE: 20200622
